FAERS Safety Report 4266840-7 (Version None)
Quarter: 2004Q1

REPORT INFORMATION
  Report Type: 
  Country: None (occurrence: None)
  Receive Date: 20040108
  Receipt Date: 20040108
  Transmission Date: 20041129
  Serious: No
  Sender: FDA-Public Use
  Company Number: None

PATIENT
  Sex: Female

DRUGS (1)
  1. HEPARIN [Suspect]
     Indication: EMBOLISM
     Dosage: INTRAVENOUS
     Route: 042
     Dates: start: 20031210, end: 20031214

REACTIONS (1)
  - HEPARIN-INDUCED THROMBOCYTOPENIA [None]
